FAERS Safety Report 7917644-2 (Version None)
Quarter: 2011Q4

REPORT INFORMATION
  Report Type: 
  Country: None (occurrence: None)
  Receive Date: 20111116
  Receipt Date: 20111114
  Transmission Date: 20120403
  Serious: Yes (Other)
  Sender: FDA-Public Use
  Company Number: DE-SANOFI-AVENTIS-2011SA060014

PATIENT
  Age: 42 Year
  Sex: Female
  Weight: 67 kg

DRUGS (5)
  1. HYDROXYCHLOROQUINE SULFATE [Suspect]
     Route: 048
     Dates: start: 20100701
  2. PREDNISOLONE [Concomitant]
     Route: 048
  3. PANTOPRAZOLE [Concomitant]
     Route: 048
  4. TOLPERISONE [Concomitant]
     Indication: MYALGIA
     Route: 048
  5. HYDROXYCHLOROQUINE SULFATE [Suspect]
     Route: 048

REACTIONS (4)
  - FOOD AVERSION [None]
  - DECREASED APPETITE [None]
  - WEIGHT DECREASED [None]
  - NAUSEA [None]
